FAERS Safety Report 4952976-1 (Version None)
Quarter: 2006Q1

REPORT INFORMATION
  Report Type: 
  Country: None (occurrence: None)
  Receive Date: 20060321
  Receipt Date: 20060306
  Transmission Date: 20060701
  Serious: Yes (Hospitalization, Disabling)
  Sender: FDA-Public Use
  Company Number: S06-FRA-00803-01

PATIENT
  Age: 65 Year
  Sex: Male
  Weight: 80 kg

DRUGS (5)
  1. SEROPLEX                        (ESCITALOPRAM) [Suspect]
     Indication: DEPRESSION
     Dosage: 10 MG QD PO
     Route: 048
     Dates: start: 20051206, end: 20051210
  2. CITALOPRAM HYDROBROMIDE [Concomitant]
  3. DEPAKOTE [Concomitant]
  4. LEPTICUR               (TROPATEPINE HYDROCHLORIDE) [Concomitant]
  5. SULFARLEM                    (ANETHOLE TRITHIONE) [Concomitant]

REACTIONS (2)
  - ENCEPHALITIS VIRAL [None]
  - LEUKOENCEPHALOPATHY [None]
